FAERS Safety Report 6264480-1 (Version None)
Quarter: 2009Q3

REPORT INFORMATION
  Report Type: 
  Country: None (occurrence: None)
  Receive Date: 20090710
  Receipt Date: 20090706
  Transmission Date: 20100115
  Serious: Yes (Life-Threatening)
  Sender: FDA-Public Use
  Company Number: JP-ASTRAZENECA-2009SE03864

PATIENT
  Age: 76 Year
  Sex: Male
  Weight: 43 kg

DRUGS (12)
  1. OMEPRAL [Suspect]
     Indication: GASTRIC ULCER
     Route: 048
     Dates: start: 20090410, end: 20090611
  2. PLAVIX [Suspect]
     Indication: ACUTE MYOCARDIAL INFARCTION
     Route: 048
     Dates: start: 20090216, end: 20090611
  3. CYTOTEC [Suspect]
     Indication: GASTRIC ULCER
     Route: 048
     Dates: start: 20090410, end: 20090611
  4. ASPIRIN [Concomitant]
     Route: 048
     Dates: start: 20090216
  5. TANATRIL [Concomitant]
     Route: 048
     Dates: start: 20090216
  6. ALDACTONE [Concomitant]
     Route: 048
     Dates: start: 20090216
  7. DIART [Concomitant]
     Route: 048
     Dates: start: 20090216
  8. NATRIX [Concomitant]
     Route: 048
     Dates: start: 20090216, end: 20090701
  9. ARTIST [Concomitant]
     Route: 048
     Dates: start: 20090216
  10. ACARDI [Concomitant]
     Route: 048
     Dates: start: 20090216
  11. GASTER D [Concomitant]
     Route: 048
     Dates: start: 20090216
  12. WARFARIN [Concomitant]
     Route: 048
     Dates: start: 20090216

REACTIONS (1)
  - INTERSTITIAL LUNG DISEASE [None]
